FAERS Safety Report 18056888 (Version 5)
Quarter: 2022Q2

REPORT INFORMATION
  Report Type: Spontaneous
  Country: US (occurrence: US)
  Receive Date: 20200722
  Receipt Date: 20220616
  Transmission Date: 20220721
  Serious: Yes (Hospitalization, Other)
  Sender: FDA-Public Use
  Company Number: US-GILEAD-2020-0473949

PATIENT
  Age: 56 Year
  Sex: Male

DRUGS (2)
  1. VIREAD [Suspect]
     Active Substance: TENOFOVIR DISOPROXIL FUMARATE
     Indication: HIV infection
     Dosage: UNK
     Route: 048
     Dates: start: 2005, end: 2019
  2. TRUVADA [Suspect]
     Active Substance: EMTRICITABINE\TENOFOVIR DISOPROXIL FUMARATE
     Indication: HIV infection
     Dosage: UNK
     Route: 048
     Dates: start: 2009, end: 2018

REACTIONS (8)
  - Chronic kidney disease [Not Recovered/Not Resolved]
  - Multiple fractures [Not Recovered/Not Resolved]
  - Osteonecrosis [Not Recovered/Not Resolved]
  - Osteoporosis [Not Recovered/Not Resolved]
  - Osteopenia [Not Recovered/Not Resolved]
  - Renal failure [Unknown]
  - Bone loss [Unknown]
  - Bone density decreased [Unknown]

NARRATIVE: CASE EVENT DATE: 20090101
